FAERS Safety Report 4937099-X (Version None)
Quarter: 2006Q1

REPORT INFORMATION
  Report Type: 
  Country: None (occurrence: None)
  Receive Date: 20060307
  Receipt Date: 20060307
  Transmission Date: 20060701
  Serious: Yes (Hospitalization)
  Sender: FDA-Public Use
  Company Number: None

PATIENT
  Age: 51 Year
  Sex: Male
  Weight: 89 kg

DRUGS (24)
  1. LYRICA [Suspect]
     Indication: NEUROPATHY
     Dates: start: 20060114, end: 20060115
  2. KEFLEX [Suspect]
     Indication: URINARY TRACT INFECTION
     Dates: start: 20060114, end: 20060115
  3. H-CORT [Concomitant]
  4. BACTRIM [Concomitant]
  5. LISINOPRIL [Concomitant]
  6. FENTANYL [Concomitant]
  7. BENADRYL [Concomitant]
  8. PROTONIX [Concomitant]
  9. PERCOCET [Concomitant]
  10. COREG [Concomitant]
  11. ZOCOR [Concomitant]
  12. ADVAIR DISKUS 100/50 [Concomitant]
  13. EPOGEN [Concomitant]
  14. AMIODARONE [Concomitant]
  15. ALLOPURINOL [Concomitant]
  16. PROZAC [Concomitant]
  17. PLAVIX [Concomitant]
  18. SYNTHROID [Concomitant]
  19. COLCHINE [Concomitant]
  20. FOLIC ACID [Concomitant]
  21. RENAGEL [Concomitant]
  22. SENSIPAR [Concomitant]
  23. VENOFER [Concomitant]
  24. ERGOCALCIFEROL [Concomitant]

REACTIONS (4)
  - ASTHENIA [None]
  - CONDITION AGGRAVATED [None]
  - HOT FLUSH [None]
  - MYOCLONUS [None]
